FAERS Safety Report 6944536-8 (Version None)
Quarter: 2010Q3

REPORT INFORMATION
  Report Type: 
  Country: None (occurrence: None)
  Receive Date: 20100827
  Receipt Date: 20100824
  Transmission Date: 20110219
  Serious: Yes (Death, Other)
  Sender: FDA-Public Use
  Company Number: KR-JNJFOC-20100808324

PATIENT

DRUGS (6)
  1. DOXORUBICIN HYDROCHLORIDE [Suspect]
     Indication: DIFFUSE LARGE B-CELL LYMPHOMA
     Dosage: ADMINISTERED ON DAY 1 OF A 2 WEEK CYCLE
     Route: 042
  2. CYCLOPHOSPHAMIDE [Suspect]
     Indication: DIFFUSE LARGE B-CELL LYMPHOMA
     Dosage: ADMINISTERED ON DAY 1 OF A 2 WEEK CYCLE
     Route: 042
  3. VINCRISTINE [Suspect]
     Indication: DIFFUSE LARGE B-CELL LYMPHOMA
     Dosage: ADMINISTERED ON DAY 1 OF A 2 WEEK CYCLE
     Route: 042
  4. PREDNISOLONE [Suspect]
     Indication: DIFFUSE LARGE B-CELL LYMPHOMA
     Dosage: ADMINISTERED ON DAYS 1 TO 5 OF A 2 WEEK CYCLE
     Route: 048
  5. BORTEZOMIB [Suspect]
     Indication: DIFFUSE LARGE B-CELL LYMPHOMA
     Dosage: ADMINISTERED ON DAYS 1 AND 4 OF A 2 WEEK CYCLE
     Route: 065
  6. GRANULOCYTE COLONY STIMULATING FACTOR [Suspect]
     Indication: DIFFUSE LARGE B-CELL LYMPHOMA
     Dosage: ADMINISTERED ON DAYS 4 TO 13 EVERY 2 WEEKS
     Route: 065

REACTIONS (2)
  - INFECTION [None]
  - NEUTROPENIA [None]
